FAERS Safety Report 9321714 (Version 4)
Quarter: 2013Q3

REPORT INFORMATION
  Report Type: Report from Study
  Country: US (occurrence: None)
  Receive Date: 20130528
  Receipt Date: 20130722
  Transmission Date: 20140515
  Serious: Yes (Life-Threatening, Hospitalization)
  Sender: FDA-Public Use
  Company Number: 2013AP003255

PATIENT
  Age: 54 Year
  Sex: Female
  Weight: 85 kg

DRUGS (6)
  1. FERRIPROX [Suspect]
     Route: 048
     Dates: start: 20130215, end: 20130215
  2. LANTUS [Concomitant]
  3. HUMALOG [Concomitant]
  4. HYDROCHLOROTHIAZDE [Concomitant]
  5. LOSARTAN [Concomitant]
  6. VITAMIN D /00107901/ [Concomitant]

REACTIONS (9)
  - Liver injury [None]
  - Renal failure acute [None]
  - Aspartate aminotransferase increased [None]
  - Alanine aminotransferase increased [None]
  - Prothrombin time prolonged [None]
  - Protein urine present [None]
  - Blood glucose increased [None]
  - Spleen palpable [None]
  - Chronic hepatic failure [None]
